FAERS Safety Report 5872883-X (Version None)
Quarter: 2008Q3

REPORT INFORMATION
  Report Type: 
  Country: None (occurrence: None)
  Receive Date: 20080905
  Receipt Date: 20080827
  Transmission Date: 20090109
  Serious: Yes (Hospitalization)
  Sender: FDA-Public Use
  Company Number: US-PFIZER INC-2008064457

PATIENT
  Age: 70 Year
  Sex: Male
  Weight: 104 kg

DRUGS (4)
  1. NORVASC [Suspect]
  2. BLINDED SU11248 (SU011248) [Suspect]
     Indication: RENAL CELL CARCINOMA
     Route: 048
  3. ATENOLOL [Suspect]
  4. PRINIVIL [Concomitant]

REACTIONS (4)
  - DEHYDRATION [None]
  - DYSPNOEA [None]
  - HYPOTENSION [None]
  - RENAL FAILURE [None]
